FAERS Safety Report 10062597 (Version 1)
Quarter: 2014Q1

REPORT INFORMATION
  Report Type: Spontaneous
  Country: US (occurrence: None)
  Receive Date: 20140318
  Receipt Date: 20140318
  Transmission Date: 20141002
  Serious: Yes (Other)
  Sender: FDA-Public Use
  Company Number: 163-21660-1303925

PATIENT
  Age: 74 Year
  Sex: Female
  Weight: 47.17 kg

DRUGS (3)
  1. ABRAXANE [Suspect]
     Indication: BREAST CANCER METASTATIC
     Dates: start: 201205, end: 201211
  2. EXEMESTANE (EXEMESTANE) (UNKNOWN) [Concomitant]
  3. AFINITOR (EVEROLIMUS)(UNKNOWN) [Concomitant]

REACTIONS (1)
  - Oedema peripheral [None]
